FAERS Safety Report 19573631 (Version 3)
Quarter: 2022Q1

REPORT INFORMATION
  Report Type: Report from Study
  Country: MX (occurrence: MX)
  Receive Date: 20210717
  Receipt Date: 20220120
  Transmission Date: 20220423
  Serious: Yes (Death, Other)
  Sender: FDA-Public Use
  Company Number: MX-UCBSA-2021033541

PATIENT
  Age: 72 Year
  Sex: Female
  Weight: 80 kg

DRUGS (5)
  1. ROTIGOTINE [Suspect]
     Active Substance: ROTIGOTINE
     Indication: Nervous system disorder
     Dosage: 4 MILLIGRAM, WEEKLY (QW)
     Route: 062
     Dates: start: 201806, end: 2020
  2. ROTIGOTINE [Suspect]
     Active Substance: ROTIGOTINE
     Indication: Periarthritis
     Dosage: 4 MILLIGRAM, WEEKLY (QW)
     Route: 062
     Dates: start: 202105, end: 20210924
  3. ROTIGOTINE [Suspect]
     Active Substance: ROTIGOTINE
     Indication: Off label use
  4. VIMPAT [Suspect]
     Active Substance: LACOSAMIDE
     Indication: Product used for unknown indication
     Dosage: UNK
  5. PALEXIA [Concomitant]
     Active Substance: TAPENTADOL HYDROCHLORIDE
     Indication: Periarthritis

REACTIONS (7)
  - Cardiac arrest [Fatal]
  - Organ failure [Fatal]
  - Cerebral artery embolism [Unknown]
  - Brain neoplasm malignant [Not Recovered/Not Resolved]
  - Gastrointestinal tube insertion [Not Recovered/Not Resolved]
  - Loss of personal independence in daily activities [Not Recovered/Not Resolved]
  - Off label use [Unknown]

NARRATIVE: CASE EVENT DATE: 20180601
